FAERS Safety Report 6562498-2 (Version None)
Quarter: 2010Q1

REPORT INFORMATION
  Report Type: 
  Country: None (occurrence: None)
  Receive Date: 20100130
  Receipt Date: 20091109
  Transmission Date: 20100710
  Serious: No
  Sender: FDA-Public Use
  Company Number: US-ABBOTT-09P-163-0607527-00

PATIENT
  Sex: Male
  Weight: 102.15 kg

DRUGS (3)
  1. HUMIRA [Suspect]
     Indication: PSORIASIS
     Dosage: DAY 1
     Dates: start: 20091011, end: 20091011
  2. HUMIRA [Suspect]
     Route: 058
     Dates: start: 20091018, end: 20091118
  3. HUMIRA [Suspect]
     Dates: start: 20091101

REACTIONS (1)
  - FATIGUE [None]
